FAERS Safety Report 8616613 (Version 5)
Quarter: 2012Q4

REPORT INFORMATION
  Report Type: 
  Country: GB (occurrence: GB)
  Receive Date: 20120615
  Receipt Date: 20120914
  Transmission Date: 20130627
  Serious: Yes (Other)
  Sender: FDA-Public Use
  Company Number: GB-US-EMD SERONO, INC.-7132272

PATIENT
  Age: 39 Year
  Sex: Male

DRUGS (8)
  1. REBIF [Suspect]
     Indication: RELAPSING-REMITTING MULTIPLE SCLEROSIS
     Route: 058
     Dates: start: 20120423, end: 20120523
  2. REBIF [Suspect]
     Route: 058
     Dates: start: 20120523
  3. REBIF [Suspect]
     Route: 058
     Dates: start: 20120611, end: 201207
  4. UNSPECIFIED INGREDIENT [Suspect]
     Indication: MULTIPLE SCLEROSIS RELAPSE
  5. LITHIUM [Concomitant]
     Indication: PRODUCT USED FOR UNKNOWN INDICATION
  6. OLANZAPINE [Concomitant]
     Indication: PRODUCT USED FOR UNKNOWN INDICATION
  7. EPILIM [Concomitant]
     Indication: PRODUCT USED FOR UNKNOWN INDICATION
  8. PARACETAMOL [Concomitant]
     Indication: HEADACHE

REACTIONS (8)
  - Bipolar disorder [Recovering/Resolving]
  - Multiple sclerosis relapse [Recovering/Resolving]
  - Dysgeusia [Recovering/Resolving]
  - Malaise [Recovering/Resolving]
  - Depression [Recovering/Resolving]
  - Influenza like illness [Not Recovered/Not Resolved]
  - Injection site pain [Not Recovered/Not Resolved]
  - Injection site erythema [Not Recovered/Not Resolved]
